FAERS Safety Report 4543551-1 (Version None)
Quarter: 2004Q4

REPORT INFORMATION
  Report Type: 
  Country: None (occurrence: None)
  Receive Date: 20041223
  Receipt Date: 20040903
  Transmission Date: 20050328
  Serious: No
  Sender: FDA-Public Use
  Company Number: US-JNJFOC-20040902509

PATIENT
  Age: 24 Year
  Sex: Female

DRUGS (4)
  1. ORTHO EVRA [Suspect]
     Indication: CONTRACEPTION
     Dosage: 1 DOSE (S), 3 IN 4 WEEK, TRANSDERMAL
     Route: 062
     Dates: start: 20040301
  2. DIURETIC (DIURETICS) [Concomitant]
  3. POTASSIUM (POTASSIUM) [Concomitant]
  4. YURIDONE (ALL OTHER THERAPEUTIC PRODUCTS) [Concomitant]

REACTIONS (2)
  - METRORRHAGIA [None]
  - OEDEMA PERIPHERAL [None]
